FAERS Safety Report 12277212 (Version 1)
Quarter: 2016Q2

REPORT INFORMATION
  Report Type: Spontaneous
  Country: US (occurrence: US)
  Receive Date: 20160418
  Receipt Date: 20160418
  Transmission Date: 20160815
  Serious: No
  Sender: FDA-Public Use
  Company Number: US-TEVA-633921USA

PATIENT
  Age: 62 Year
  Sex: Female

DRUGS (1)
  1. ZECUITY [Suspect]
     Active Substance: SUMATRIPTAN SUCCINATE
     Dosage: 6/5 MG OVER 4 HOURS
     Route: 062
     Dates: start: 201602

REACTIONS (3)
  - Abdominal discomfort [Unknown]
  - Drug ineffective [Unknown]
  - Device battery issue [Unknown]

NARRATIVE: CASE EVENT DATE: 201602
